FAERS Safety Report 6616900-8 (Version None)
Quarter: 2010Q1

REPORT INFORMATION
  Report Type: 
  Country: None (occurrence: None)
  Receive Date: 20100305
  Receipt Date: 20100222
  Transmission Date: 20100710
  Serious: Yes (Other)
  Sender: FDA-Public Use
  Company Number: US-PFIZER INC-2010024465

PATIENT
  Sex: Female
  Weight: 56.689 kg

DRUGS (3)
  1. CHANTIX [Suspect]
     Indication: SMOKING CESSATION THERAPY
     Dosage: 1 MG, 2X/DAY
     Dates: start: 20100101, end: 20100201
  2. LEXAPRO [Concomitant]
     Indication: ANXIETY
     Dosage: 10 MG, UNK
  3. XYZAL [Concomitant]
     Dosage: 5 MG, UNK

REACTIONS (5)
  - AGGRESSION [None]
  - DIZZINESS [None]
  - HEART RATE DECREASED [None]
  - HEART RATE IRREGULAR [None]
  - PHARYNGITIS STREPTOCOCCAL [None]
